FAERS Safety Report 16153445 (Version 1)
Quarter: 2019Q2

REPORT INFORMATION
  Report Type: Spontaneous
  Country: US (occurrence: US)
  Receive Date: 20190403
  Receipt Date: 20190403
  Transmission Date: 20190711
  Serious: No
  Sender: FDA-Public Use
  Company Number: US-TEVA-2019-US-1033448

PATIENT
  Age: 56 Year
  Sex: Female
  Weight: 104 kg

DRUGS (5)
  1. ATENOLOL. [Concomitant]
     Active Substance: ATENOLOL
  2. SYNTHROID [Concomitant]
     Active Substance: LEVOTHYROXINE SODIUM
  3. AJOVY [Suspect]
     Active Substance: FREMANEZUMAB-VFRM
     Indication: MIGRAINE
     Route: 065
     Dates: start: 201812
  4. TROKENDI XR [Concomitant]
     Active Substance: TOPIRAMATE
  5. CELEBREX [Concomitant]
     Active Substance: CELECOXIB

REACTIONS (5)
  - Thermal burn [Unknown]
  - Weight decreased [Unknown]
  - Pain of skin [Unknown]
  - Dry skin [Unknown]
  - Pruritus [Unknown]

NARRATIVE: CASE EVENT DATE: 20190305
